FAERS Safety Report 9479534 (Version 1)
Quarter: 2013Q3

REPORT INFORMATION
  Report Type: Spontaneous
  Country: US (occurrence: US)
  Receive Date: 20130827
  Receipt Date: 20130827
  Transmission Date: 20140515
  Serious: Yes (Other)
  Sender: FDA-Public Use
  Company Number: US-UCBSA-095922

PATIENT
  Sex: 0

DRUGS (2)
  1. CIMZIA [Suspect]
     Indication: CROHN^S DISEASE
     Dates: start: 2013
  2. FLAGYL [Concomitant]

REACTIONS (5)
  - Crohn^s disease [Unknown]
  - Clostridium difficile infection [Unknown]
  - Gastrointestinal fistula [Unknown]
  - Gastrointestinal stoma complication [Unknown]
  - JC virus test positive [Unknown]
